FAERS Safety Report 22295123 (Version 1)
Quarter: 2023Q2

REPORT INFORMATION
  Report Type: Spontaneous
  Country: ZA (occurrence: None)
  Receive Date: 20230505
  Receipt Date: 20230505
  Transmission Date: 20230722
  Serious: No
  Sender: FDA-Public Use
  Company Number: None

PATIENT
  Age: 36 Year
  Sex: Female
  Weight: 68 kg

DRUGS (7)
  1. KEYTRUDA [Suspect]
     Active Substance: PEMBROLIZUMAB
     Indication: Hodgkin^s disease
     Dosage: OTHER FREQUENCY : ONCE EVERY 3 WEEKS?
     Route: 042
  2. Contraceptive (Zoely) [Concomitant]
  3. CURCUMIN [Concomitant]
     Active Substance: CURCUMIN
  4. Omega oils [Concomitant]
  5. N-Acetylene-cysteine [Concomitant]
  6. ACETYLCARNITINE [Concomitant]
     Active Substance: ACETYLCARNITINE
  7. MEDICINAL MUSHROOMS [Concomitant]

REACTIONS (8)
  - Sinus disorder [None]
  - Influenza like illness [None]
  - Hypersensitivity [None]
  - Tonsillitis [None]
  - Eyelid irritation [None]
  - Eyelids pruritus [None]
  - Skin exfoliation [None]
  - Eyelid skin dryness [None]

NARRATIVE: CASE EVENT DATE: 20230201
